FAERS Safety Report 7704788-3 (Version None)
Quarter: 2011Q3

REPORT INFORMATION
  Report Type: 
  Country: None (occurrence: None)
  Receive Date: 20110823
  Receipt Date: 20110819
  Transmission Date: 20111222
  Serious: Yes (Other)
  Sender: FDA-Public Use
  Company Number: IE-PFIZER INC-2011191994

PATIENT

DRUGS (1)
  1. CARDURA [Suspect]
     Dosage: 8 MG, UNK

REACTIONS (1)
  - DYSPHAGIA [None]
